FAERS Safety Report 7576617-2 (Version None)
Quarter: 2011Q2

REPORT INFORMATION
  Report Type: 
  Country: None (occurrence: None)
  Receive Date: 20110628
  Receipt Date: 20110622
  Transmission Date: 20111010
  Serious: Yes (Life-Threatening, Other)
  Sender: FDA-Public Use
  Company Number: JP-ELI_LILLY_AND_COMPANY-JP201106007307

PATIENT
  Sex: Female

DRUGS (15)
  1. HUMALOG [Suspect]
     Indication: TYPE 2 DIABETES MELLITUS
     Dosage: 4 U, QD
  2. LENDORMIN [Concomitant]
     Dosage: 0.25 (UNITS NOT PROVIDED) X2
  3. HUMALOG MIX 75/25 [Suspect]
     Indication: TYPE 2 DIABETES MELLITUS
     Dosage: 14U IN THE MORNIG AND 10U IN THE EVENING
  4. METFORMIN HCL [Concomitant]
     Dosage: 750 MG, QD
  5. OLMESARTAN MEDOXOMIL [Concomitant]
     Dosage: 20 MG, BID
  6. METHYCOBAL [Concomitant]
     Dosage: 500 UG, TID
  7. PARIET                                  /JPN/ [Concomitant]
     Dosage: 10 MG, QD
  8. CALBLOCK                                /JPN/ [Concomitant]
     Dosage: 16 MG, QD
  9. DEPAS [Concomitant]
     Dosage: 0.5 MG, TID
  10. PROMAC                                  /JPN/ [Concomitant]
     Dosage: 75 MG, QD
  11. ACTOS [Concomitant]
     Dosage: 30 MG, QD
  12. KINEDAK [Concomitant]
     Dosage: 50 MG, TID
  13. ZETIA [Concomitant]
     Dosage: 10 MG, QD
  14. MEVALOTIN                               /JPN/ [Concomitant]
     Dosage: 10 MG, QD
  15. ZOLPIDEM [Concomitant]
     Dosage: 5 MG, QD

REACTIONS (2)
  - HYPOGLYCAEMIC COMA [None]
  - SUICIDE ATTEMPT [None]
